FAERS Safety Report 5612862-0 (Version None)
Quarter: 2008Q1

REPORT INFORMATION
  Report Type: 
  Country: None (occurrence: None)
  Receive Date: 20080204
  Receipt Date: 20080122
  Transmission Date: 20080703
  Serious: Yes (Other)
  Sender: FDA-Public Use
  Company Number: GB-PFIZER INC-2008004832

PATIENT
  Sex: Female

DRUGS (1)
  1. VIBRAMYCIN [Suspect]
     Route: 048

REACTIONS (6)
  - ALCOHOL INTOLERANCE [None]
  - MALAISE [None]
  - ONYCHOLYSIS [None]
  - PHOTOSENSITIVITY REACTION [None]
  - PORPHYRIA [None]
  - RENAL PAIN [None]
